FAERS Safety Report 21974247 (Version 1)
Quarter: 2023Q1

REPORT INFORMATION
  Report Type: Spontaneous
  Country: JP (occurrence: JP)
  Receive Date: 20230209
  Receipt Date: 20230209
  Transmission Date: 20230418
  Serious: Yes (Other)
  Sender: FDA-Public Use
  Company Number: JP-TAIHO-2023-000247

PATIENT
  Age: 65 Year
  Sex: Male

DRUGS (2)
  1. ABRAXANE [Suspect]
     Active Substance: PACLITAXEL
     Indication: Gastric neuroendocrine carcinoma
     Dosage: NI
     Route: 041
  2. CYRAMZA [Concomitant]
     Active Substance: RAMUCIRUMAB
     Indication: Gastric neuroendocrine carcinoma
     Dosage: NI
     Route: 041

REACTIONS (1)
  - Pericardial effusion [Unknown]
